FAERS Safety Report 9387777 (Version 1)
Quarter: 2013Q3

REPORT INFORMATION
  Report Type: Spontaneous
  Country: IT (occurrence: None)
  Receive Date: 20130703
  Receipt Date: 20130703
  Transmission Date: 20140515
  Serious: Yes (Hospitalization)
  Sender: FDA-Public Use
  Company Number: GER/ITL/13/0030321

PATIENT
  Age: 83 Year
  Sex: Male

DRUGS (7)
  1. CITALOPRAM [Suspect]
     Indication: DEPRESSION
     Route: 048
     Dates: start: 20100101, end: 20130511
  2. CARDIOASPIRIN (ACETYLSALICYLIC ACID) [Suspect]
     Indication: PROPHYLAXIS
     Dosage: 1 DOSAGE FORMS, ORAL
     Route: 048
     Dates: start: 20100101, end: 20130511
  3. ENALAPRIL [Concomitant]
  4. LASIX (FUROSEMIDE) [Concomitant]
  5. SIMVASTATIN (SIMVASTATIN) [Concomitant]
  6. OLANZAPINE (OLANZAPINE) [Concomitant]
  7. MIRTAZAPINE (MIRTAZAPINE) [Concomitant]

REACTIONS (1)
  - Subarachnoid haemorrhage [None]
